FAERS Safety Report 4376853-2 (Version None)
Quarter: 2004Q2

REPORT INFORMATION
  Report Type: 
  Country: None (occurrence: None)
  Receive Date: 20040609
  Receipt Date: 20040226
  Transmission Date: 20050107
  Serious: Yes (Other)
  Sender: FDA-Public Use
  Company Number: PHEH2004US01676

PATIENT
  Age: 46 Year
  Sex: Male
  Weight: 75.7 kg

DRUGS (1)
  1. GLEEVEC [Suspect]
     Indication: GASTROINTESTINAL STROMAL TUMOUR
     Dosage: 200 + 300 + 400 MG, QD, ORAL
     Route: 048
     Dates: start: 20031231, end: 20040101

REACTIONS (1)
  - LIPASE INCREASED [None]
